FAERS Safety Report 8083056 (Version 2)
Quarter: 2013Q2

REPORT INFORMATION
  Report Type: Spontaneous
  Country: US (occurrence: US)
  Receive Date: 20110809
  Receipt Date: 20120510
  Transmission Date: 20140414
  Serious: Yes (Other)
  Sender: FDA-Public Use
  Company Number: PHEH2010US03390

PATIENT
  Sex: Female
  Weight: 114.3 kg

DRUGS (7)
  1. ZELNORM [Suspect]
     Indication: IRRITABLE BOWEL SYNDROME
     Route: 048
  2. ZELNORM [Suspect]
     Route: 048
  3. ZESTRIL [Concomitant]
  4. PREMARIN [Concomitant]
  5. ZOCOR [Concomitant]
  6. LEVAQUIN [Concomitant]
  7. BABY ASPIRIN [Concomitant]

REACTIONS (26)
  - CHRONIC OBSTRUCTIVE PULMONARY DISEASE [Unknown]
  - DIAPHRAGMATIC HERNIA [Unknown]
  - GASTRIC ULCER [Unknown]
  - GASTROOESOPHAGEAL REFLUX DISEASE [Unknown]
  - RHEUMATOID ARTHRITIS [Unknown]
  - OBESITY [Unknown]
  - LIP AND/OR ORAL CAVITY CANCER [Unknown]
  - OSTEOPENIA [Unknown]
  - CARDIOMEGALY [Unknown]
  - INFECTION [Unknown]
  - BRONCHOPNEUMONIA [Unknown]
  - SLEEP APNOEA SYNDROME [Unknown]
  - RESPIRATORY DISTRESS [Unknown]
  - ARTERIOSCLEROSIS [Unknown]
  - VASCULAR CALCIFICATION [Unknown]
  - DEPRESSION [Unknown]
  - CHEST PAIN [Unknown]
  - DYSPNOEA [Unknown]
  - CATARACT [Unknown]
  - CARDIAC DISORDER [Unknown]
  - STRESS URINARY INCONTINENCE [Unknown]
  - HYPERGLYCAEMIA [Unknown]
  - INJURY [Unknown]
  - HYPERTENSION [Unknown]
  - HYPERLIPIDAEMIA [Unknown]
  - MUSCULOSKELETAL PAIN [Unknown]
